FAERS Safety Report 7341856 (Version 7)
Quarter: 2015Q2

REPORT INFORMATION
  Report Type: Report from Study
  Country: US (occurrence: US)
  Receive Date: 20100402
  Receipt Date: 20150420
  Transmission Date: 20150821
  Serious: Yes (Hospitalization, Other)
  Sender: FDA-Public Use
  Company Number: US-BIOGENIDEC-2010BI010203

PATIENT
  Age: 50 Year
  Sex: Female
  Weight: 48 kg

DRUGS (3)
  1. AVONEX [Suspect]
     Active Substance: INTERFERON BETA-1A
     Indication: MULTIPLE SCLEROSIS
     Route: 030
     Dates: start: 20031007, end: 20050331
  2. AVONEX [Suspect]
     Active Substance: INTERFERON BETA-1A
     Indication: MULTIPLE SCLEROSIS
     Route: 030
     Dates: start: 20090117, end: 201212
  3. AVONEX [Suspect]
     Active Substance: INTERFERON BETA-1A
     Indication: MULTIPLE SCLEROSIS
     Route: 030
     Dates: start: 201212, end: 20130131

REACTIONS (29)
  - Neck pain [Unknown]
  - Intervertebral disc protrusion [Recovered/Resolved]
  - Surgery [Recovered/Resolved]
  - Thyroid function test abnormal [Recovered/Resolved]
  - Memory impairment [Not Recovered/Not Resolved]
  - Erythema [Unknown]
  - Induration [Unknown]
  - Back pain [Unknown]
  - Weight decreased [Recovered/Resolved]
  - Thyroid disorder [Unknown]
  - Fear [Unknown]
  - Rash papular [Unknown]
  - Procedural pain [Recovered/Resolved]
  - Weight increased [Recovered/Resolved]
  - Thyroxine free abnormal [Recovered/Resolved]
  - Dry mouth [Unknown]
  - Impaired healing [Recovered/Resolved]
  - Wound infection [Recovered/Resolved]
  - Skin ulcer [Not Recovered/Not Resolved]
  - Laboratory test abnormal [Recovered/Resolved]
  - Alopecia [Recovered/Resolved]
  - Swelling [Unknown]
  - Seizure [Recovered/Resolved]
  - Mobility decreased [Not Recovered/Not Resolved]
  - Muscular weakness [Not Recovered/Not Resolved]
  - Osteomyelitis viral [Recovered/Resolved]
  - Decubitus ulcer [Unknown]
  - Mood swings [Unknown]
  - Asthenia [Not Recovered/Not Resolved]

NARRATIVE: CASE EVENT DATE: 2003
